FAERS Safety Report 7074728-1 (Version None)
Quarter: 2010Q4

REPORT INFORMATION
  Report Type: 
  Country: None (occurrence: None)
  Receive Date: 20101029
  Receipt Date: 20101028
  Transmission Date: 20110411
  Serious: Yes (Death, Hospitalization, Other)
  Sender: FDA-Public Use
  Company Number: US-WYE-H14706610

PATIENT
  Age: 74 Year
  Sex: Female
  Weight: 102.3 kg

DRUGS (6)
  1. TEMSIROLIMUS [Suspect]
     Indication: MALIGNANT MELANOMA
     Dosage: 25MG OVER 30 MINUTES ON DAYS 1, 8, 15, AND 22
     Route: 042
     Dates: start: 20091014, end: 20100113
  2. ACETYLSALICYLIC ACID SRT [Concomitant]
     Dosage: UNKNOWN
  3. HYDROCHLOROTHIAZIDE [Concomitant]
     Dosage: UNKNOWN
  4. COZAAR [Concomitant]
     Dosage: UNKNOWN
  5. SORAFENIB [Suspect]
     Indication: MALIGNANT MELANOMA
     Route: 048
     Dates: start: 20091014, end: 20100124
  6. AMLODIPINE [Concomitant]
     Dosage: UNKNOWN

REACTIONS (2)
  - PANCREATITIS [None]
  - RENAL FAILURE [None]
